FAERS Safety Report 7002983-2 (Version None)
Quarter: 2010Q3

REPORT INFORMATION
  Report Type: 
  Country: None (occurrence: None)
  Receive Date: 20100920
  Receipt Date: 20100702
  Transmission Date: 20110219
  Serious: No
  Sender: FDA-Public Use
  Company Number: US-ASTRAZENECA-2010SE26301

PATIENT
  Age: 76 Year
  Sex: Male
  Weight: 74.8 kg

DRUGS (6)
  1. SEROQUEL [Suspect]
     Indication: BIPOLAR I DISORDER
     Route: 048
  2. SEROQUEL [Suspect]
     Indication: TREMOR
     Route: 048
  3. SEROQUEL [Suspect]
     Dosage: 100 MG IN MORNING, 50 MG IN AFTERNOON AND 100MG AT BED TIME
     Route: 048
  4. SEROQUEL [Suspect]
     Dosage: 100 MG IN MORNING, 50 MG IN AFTERNOON AND 100MG AT BED TIME
     Route: 048
  5. LORAZEPAM [Concomitant]
     Route: 048
  6. LEVOTHYROXINE SODIUM [Concomitant]
     Indication: THYROID DISORDER

REACTIONS (7)
  - ARTHRALGIA [None]
  - DRY THROAT [None]
  - INSOMNIA [None]
  - NASAL CONGESTION [None]
  - PERIPHERAL COLDNESS [None]
  - POLYNEUROPATHY [None]
  - TREMOR [None]
